FAERS Safety Report 6405304-9 (Version None)
Quarter: 2009Q4

REPORT INFORMATION
  Report Type: 
  Country: None (occurrence: None)
  Receive Date: 20091016
  Receipt Date: 20091016
  Transmission Date: 20100525
  Serious: No
  Sender: FDA-Public Use
  Company Number: None

PATIENT
  Age: 78 Year
  Sex: Female
  Weight: 64.8644 kg

DRUGS (3)
  1. CLINDAMYCIN [Suspect]
     Indication: INFECTION
     Dosage: 150 MG QID ORAL
     Route: 048
     Dates: start: 20090903
  2. CLINDAMYCIN [Suspect]
     Indication: INFECTION
     Dosage: 150 MG QID ORAL
     Route: 048
     Dates: start: 20090904
  3. CLINDAMYCIN [Suspect]
     Indication: INFECTION
     Dosage: 150 MG QID ORAL
     Route: 048
     Dates: start: 20090905

REACTIONS (3)
  - ABDOMINAL DISCOMFORT [None]
  - DIARRHOEA [None]
  - DYSPEPSIA [None]
